FAERS Safety Report 4715019-0 (Version None)
Quarter: 2005Q3

REPORT INFORMATION
  Report Type: 
  Country: None (occurrence: None)
  Receive Date: 20050715
  Receipt Date: 20050712
  Transmission Date: 20060218
  Serious: Yes (Life-Threatening)
  Sender: FDA-Public Use
  Company Number: PHBS2005VE10005

PATIENT
  Age: 70 Year
  Sex: Male

DRUGS (2)
  1. DIOVAN [Suspect]
     Dosage: 160 MG, UNK
  2. DIOVAN [Suspect]
     Dosage: 320 MG, UNK

REACTIONS (3)
  - CEREBROVASCULAR ACCIDENT [None]
  - COUGH [None]
  - HYPERTENSION [None]
